FAERS Safety Report 25183233 (Version 1)
Quarter: 2025Q2

REPORT INFORMATION
  Report Type: Spontaneous
  Country: US (occurrence: US)
  Receive Date: 20250410
  Receipt Date: 20250410
  Transmission Date: 20250716
  Serious: Yes (Other)
  Sender: SANOFI AVENTIS
  Company Number: US-SA-2025SA101370

PATIENT
  Age: 61 Year
  Sex: Female
  Weight: 68.027 kg

DRUGS (24)
  1. DUPIXENT [Suspect]
     Active Substance: DUPILUMAB
     Indication: Dermatitis atopic
     Dosage: 300 MG, QOW
     Route: 058
  2. TRIAMCINOLONE ACETONIDE [Concomitant]
     Active Substance: TRIAMCINOLONE ACETONIDE
  3. HYDROXYZINE HYDROCHLORIDE [Concomitant]
     Active Substance: HYDROXYZINE HYDROCHLORIDE
  4. CLARITIN [Concomitant]
     Active Substance: LORATADINE
  5. CYCLOBENZAPRINE HYDROCHLORIDE [Concomitant]
     Active Substance: CYCLOBENZAPRINE HYDROCHLORIDE
  6. CHOLESTYRAMINE [Concomitant]
     Active Substance: CHOLESTYRAMINE
  7. IMODIUM A-D [Concomitant]
     Active Substance: LOPERAMIDE HYDROCHLORIDE
  8. RHINOCORT ALLERGY [Concomitant]
     Active Substance: BUDESONIDE
  9. PROMETHAZINE HYDROCHLORIDE [Concomitant]
     Active Substance: PROMETHAZINE HYDROCHLORIDE
  10. PERCOCET [Concomitant]
     Active Substance: ACETAMINOPHEN\OXYCODONE HYDROCHLORIDE
  11. BUSPIRONE HCL [Concomitant]
     Active Substance: BUSPIRONE HYDROCHLORIDE
  12. ONDANSETRON HYDROCHLORIDE [Concomitant]
     Active Substance: ONDANSETRON HYDROCHLORIDE
  13. XANAX [Concomitant]
     Active Substance: ALPRAZOLAM
  14. VITAMINS [Concomitant]
     Active Substance: VITAMINS
  15. VITAMIN C [Concomitant]
     Active Substance: ASCORBIC ACID
  16. NEULASTA [Concomitant]
     Active Substance: PEGFILGRASTIM
  17. PROBIOTIC ACIDOPHILUS [LACTOBACILLUS ACIDOPHILUS] [Concomitant]
  18. MAGNESIUM [Concomitant]
     Active Substance: MAGNESIUM
  19. CLINDAMYCIN [Concomitant]
     Active Substance: CLINDAMYCIN
  20. LEXAPRO [Concomitant]
     Active Substance: ESCITALOPRAM OXALATE
  21. MUCINEX [Concomitant]
     Active Substance: GUAIFENESIN
  22. SINGULAIR [Concomitant]
     Active Substance: MONTELUKAST SODIUM
  23. PROAIR DIGIHALER [Concomitant]
     Active Substance: ALBUTEROL SULFATE
  24. ZYRTEC-D ALLERGY AND CONGESTION [Concomitant]
     Active Substance: CETIRIZINE HYDROCHLORIDE\PSEUDOEPHEDRINE HYDROCHLORIDE

REACTIONS (3)
  - Neoplasm malignant [Unknown]
  - Accidental exposure to product [Unknown]
  - Exposure via skin contact [Unknown]

NARRATIVE: CASE EVENT DATE: 20240101
